FAERS Safety Report 18958373 (Version 3)
Quarter: 2021Q2

REPORT INFORMATION
  Report Type: Spontaneous
  Country: DE (occurrence: DE)
  Receive Date: 20210302
  Receipt Date: 20210629
  Transmission Date: 20210717
  Serious: Yes (Other)
  Sender: FDA-Public Use
  Company Number: DE-SHILPA MEDICARE LIMITED-SML-DE-2021-00239

PATIENT
  Age: 68 Year
  Sex: Female

DRUGS (9)
  1. DOCETAXEL, UNKNOWN [Suspect]
     Active Substance: DOCETAXEL
     Indication: LUNG CANCER METASTATIC
     Dosage: 75 MILLIGRAM/SQ. METER
     Route: 065
     Dates: start: 20190704, end: 20191017
  2. NINTEDANIB [Suspect]
     Active Substance: NINTEDANIB
     Dosage: D2 ?21, 2 X200MG
     Route: 065
     Dates: start: 20190705, end: 20190904
  3. DOCETAXEL, UNKNOWN [Suspect]
     Active Substance: DOCETAXEL
     Dosage: THE FIRST CYCLE
     Route: 065
     Dates: start: 20210204, end: 20210225
  4. NINTEDANIB [Suspect]
     Active Substance: NINTEDANIB
     Indication: LUNG CANCER METASTATIC
     Dosage: 2 X 150 MG
     Route: 065
     Dates: start: 20190906
  5. DENOSUMAB [Concomitant]
     Active Substance: DENOSUMAB
     Indication: PROPHYLAXIS
     Dosage: UNK
     Route: 065
     Dates: start: 20190411
  6. PEMBROLIZUMAB. [Suspect]
     Active Substance: PEMBROLIZUMAB
     Indication: LUNG NEOPLASM MALIGNANT
     Dosage: UNK
     Route: 065
     Dates: start: 20190411, end: 20190613
  7. CARBOPLATIN. [Suspect]
     Active Substance: CARBOPLATIN
     Indication: LUNG NEOPLASM MALIGNANT
     Dosage: UNK
     Route: 065
     Dates: start: 20190411, end: 20190613
  8. NINTEDANIB [Suspect]
     Active Substance: NINTEDANIB
     Dosage: UNK
     Route: 065
     Dates: start: 20191018, end: 20210204
  9. PEMETREXED DISODIUM [Suspect]
     Active Substance: PEMETREXED DISODIUM
     Indication: LUNG NEOPLASM MALIGNANT
     Dosage: UNK
     Route: 065
     Dates: start: 20190411, end: 20190613

REACTIONS (3)
  - Diarrhoea [Unknown]
  - Nausea [Unknown]
  - Malignant neoplasm progression [Unknown]

NARRATIVE: CASE EVENT DATE: 2019
